FAERS Safety Report 21788172 (Version 1)
Quarter: 2022Q4

REPORT INFORMATION
  Report Type: Spontaneous
  Country: US (occurrence: US)
  Receive Date: 20221228
  Receipt Date: 20221228
  Transmission Date: 20230112
  Serious: No
  Sender: FDA-Public Use
  Company Number: US-PFIZER INC-PV202200127633

PATIENT
  Age: 64 Year
  Sex: Female
  Weight: 72.562 kg

DRUGS (5)
  1. XELJANZ XR [Suspect]
     Active Substance: TOFACITINIB CITRATE
     Dosage: 11 MG
     Dates: start: 2013, end: 202102
  2. PLAQUENIL [Concomitant]
     Active Substance: HYDROXYCHLOROQUINE SULFATE
     Indication: Rheumatoid arthritis
     Dosage: UNK
  3. ARAVA [Concomitant]
     Active Substance: LEFLUNOMIDE
     Indication: Rheumatoid arthritis
     Dosage: UNK
  4. DENOSUMAB [Concomitant]
     Active Substance: DENOSUMAB
     Indication: Osteoporosis
     Dosage: UNK
  5. TRAMADOL [Concomitant]
     Active Substance: TRAMADOL

REACTIONS (1)
  - Therapeutic response shortened [Unknown]

NARRATIVE: CASE EVENT DATE: 20210201
